FAERS Safety Report 25943220 (Version 1)
Quarter: 2025Q4

REPORT INFORMATION
  Report Type: Spontaneous
  Country: US (occurrence: None)
  Receive Date: 20251020
  Receipt Date: 20251020
  Transmission Date: 20260118
  Serious: Yes (Other)
  Sender: FDA-CTU
  Company Number: None

PATIENT
  Age: 13 Year
  Sex: Female
  Weight: 78 kg

DRUGS (1)
  1. RIMEGEPANT [Suspect]
     Active Substance: RIMEGEPANT
     Indication: Migraine
     Dates: start: 20250924

REACTIONS (5)
  - Circulatory collapse [None]
  - Loss of consciousness [None]
  - Cardiac arrest [None]
  - Tachycardia [None]
  - Cardiac arrest [None]

NARRATIVE: CASE EVENT DATE: 20250924
